FAERS Safety Report 10205536 (Version 1)
Quarter: 2014Q2

REPORT INFORMATION
  Report Type: Spontaneous
  Country: IN (occurrence: IN)
  Receive Date: 20140529
  Receipt Date: 20140529
  Transmission Date: 20141212
  Serious: Yes (Disabling)
  Sender: FDA-Public Use
  Company Number: IN-WATSON-2014-11483

PATIENT
  Age: 25 Year
  Sex: Male

DRUGS (1)
  1. LIDOCAINE HYDROCHLORIDE 2% WITH EPINEPHRINE (WATSON LABORATORIES) [Suspect]
     Indication: LOCAL ANAESTHESIA
     Dosage: LIDOCAINE 2% CONTAINING EPINEPHRINE (1:80,000)
     Route: 065

REACTIONS (1)
  - Amaurosis [Recovered/Resolved]
